FAERS Safety Report 19820569 (Version 1)
Quarter: 2021Q3

REPORT INFORMATION
  Report Type: Spontaneous
  Country: US (occurrence: US)
  Receive Date: 20210911
  Receipt Date: 20210911
  Transmission Date: 20211014
  Serious: Yes (Other)
  Sender: FDA-Public Use
  Company Number: None

PATIENT
  Age: 56 Year
  Sex: Female
  Weight: 97.65 kg

DRUGS (28)
  1. PULMOZYME [Concomitant]
     Active Substance: DORNASE ALFA
  2. LEMON BALM [Concomitant]
     Active Substance: HERBALS\MELISSA OFFICINALIS
  3. SLOW RELEASE MELATONIN [Concomitant]
  4. DIGESTIVE ENZYMES [Concomitant]
     Active Substance: UNSPECIFIED INGREDIENT
  5. HYDROXY B12 [Concomitant]
  6. CLARITIN [Concomitant]
     Active Substance: LORATADINE
  7. DHHB [Concomitant]
  8. GLUTATHIONE [Concomitant]
     Active Substance: GLUTATHIONE
  9. VITAMIN C [Concomitant]
     Active Substance: ASCORBIC ACID
  10. VALERIAN ROUTE [Concomitant]
  11. SYNTHROID [Concomitant]
     Active Substance: LEVOTHYROXINE SODIUM
  12. NEBULIZER [Concomitant]
     Active Substance: DEVICE
  13. PASSION FLOWER [Concomitant]
     Active Substance: HERBALS\HOMEOPATHICS\PASSIFLORA INCARNATA FLOWER
  14. LAMICTAL [Concomitant]
     Active Substance: LAMOTRIGINE
  15. PERCUSSION VEST [Concomitant]
  16. VITAMIN D [Concomitant]
     Active Substance: VITAMIN D NOS
  17. ALBUTEROL. [Concomitant]
     Active Substance: ALBUTEROL
  18. TRAZEDONE [Concomitant]
  19. APAP [Concomitant]
     Active Substance: ACETAMINOPHEN
  20. GABA [Concomitant]
     Active Substance: HOMEOPATHICS
  21. HISTAMINE DIGESTIVES [Concomitant]
  22. PANTOTHENIC ACID [Concomitant]
     Active Substance: PANTOTHENIC ACID
  23. MAGNESIUM GLISAN EIGHT [Concomitant]
  24. PEPTIDES [Concomitant]
  25. TRIKAFTA [Suspect]
     Active Substance: ELEXACAFTOR\IVACAFTOR\TEZACAFTOR
     Indication: CYSTIC FIBROSIS
     Dosage: ?          QUANTITY:3 TABLET(S);?
     Route: 048
     Dates: start: 20201128, end: 20210910
  26. HYPERTONIC SALINE [Concomitant]
     Active Substance: SODIUM CHLORIDE
  27. SELENIUM METHIONINE [Concomitant]
  28. FISH OIL [Concomitant]
     Active Substance: FISH OIL

REACTIONS (4)
  - Insomnia [None]
  - Anxiety [None]
  - Asthma [None]
  - Depression [None]

NARRATIVE: CASE EVENT DATE: 20210823
